FAERS Safety Report 6403058-3 (Version None)
Quarter: 2009Q4

REPORT INFORMATION
  Report Type: 
  Country: None (occurrence: None)
  Receive Date: 20091016
  Receipt Date: 20091009
  Transmission Date: 20100525
  Serious: Yes (Hospitalization)
  Sender: FDA-Public Use
  Company Number: JP-WYE-H11587809

PATIENT
  Age: 83 Year
  Sex: Male

DRUGS (7)
  1. ZOSYN [Suspect]
     Indication: PNEUMONIA
     Dosage: 13.5 GRAMS DAILY
     Route: 042
     Dates: start: 20091002, end: 20091007
  2. GASTER [Concomitant]
     Dosage: UNKNOWN
     Route: 065
  3. ERYTHROCIN LACTOBIONATE [Concomitant]
     Route: 048
  4. SPIRONOLACTONE [Concomitant]
     Dosage: UNKNOWN
     Route: 048
  5. SODIUM CHLORIDE [Concomitant]
     Dosage: UNKNOWN
     Route: 065
  6. VERAPAMIL HCL [Concomitant]
     Route: 048
  7. DIGOXIN [Concomitant]
     Dosage: UNKNOWN
     Route: 065

REACTIONS (3)
  - CONDITION AGGRAVATED [None]
  - LIVER DISORDER [None]
  - LIVER FUNCTION TEST ABNORMAL [None]
